FAERS Safety Report 8784379 (Version 1)
Quarter: 2012Q4

REPORT INFORMATION
  Report Type: 
  Country: MX (occurrence: MX)
  Receive Date: 20120913
  Receipt Date: 20120913
  Transmission Date: 20130627
  Serious: Yes (Other)
  Sender: FDA-Public Use
  Company Number: MX-BRISTOL-MYERS SQUIBB COMPANY-16941460

PATIENT
  Age: 77 Year
  Sex: Female
  Weight: 67 kg

DRUGS (7)
  1. COAPROVEL TABS 150MG/12.5MG [Suspect]
     Indication: HYPERTENSION
     Dosage: 1DF = 1 tablet
stopped on:Apr12
Restarted:May12
     Route: 048
     Dates: start: 2009
  2. NORVAS [Concomitant]
     Indication: HYPERTENSION
     Dosage: Tabs
     Route: 048
     Dates: start: 2009
  3. TENORMIN [Concomitant]
     Indication: HYPERTENSION
     Dosage: Tabs
     Route: 048
     Dates: start: 2009
  4. ARAVA [Concomitant]
     Indication: RHEUMATOID ARTHRITIS
     Route: 048
     Dates: start: 2007, end: 201202
  5. SULPHASALAZINE [Concomitant]
     Indication: RHEUMATOID ARTHRITIS
     Route: 048
     Dates: start: 201202
  6. CLOPIDOGREL BISULFATE [Concomitant]
     Indication: THROMBOSIS PROPHYLAXIS
     Dosage: 75mg;1DF = 1 tablet
     Route: 048
     Dates: start: 201208
  7. ASPIRINA [Concomitant]
     Indication: THROMBOSIS PROPHYLAXIS
     Dosage: 1DF = 1 tablet
     Route: 048
     Dates: start: 201208

REACTIONS (5)
  - Cholelithiasis [Recovered/Resolved]
  - Cerebral infarction [Unknown]
  - Fall [Recovered/Resolved]
  - Headache [Recovered/Resolved]
  - Hypercholesterolaemia [Not Recovered/Not Resolved]
